FAERS Safety Report 18205989 (Version 1)
Quarter: 2020Q3

REPORT INFORMATION
  Report Type: Spontaneous
  Country: GB (occurrence: GB)
  Receive Date: 20200828
  Receipt Date: 20200828
  Transmission Date: 20201103
  Serious: Yes (Hospitalization, Other)
  Sender: FDA-Public Use
  Company Number: GB-TEVA-2020-GB-1820282

PATIENT
  Age: 22 Year
  Sex: Female
  Weight: 58.06 kg

DRUGS (5)
  1. TRIMETHOPRIM. [Concomitant]
     Active Substance: TRIMETHOPRIM
  2. OLANZAPINE. [Concomitant]
     Active Substance: OLANZAPINE
  3. CIPROFLOXACIN HYDROCHLORIDE. [Suspect]
     Active Substance: CIPROFLOXACIN HYDROCHLORIDE
     Indication: URINARY TRACT INFECTION
     Dosage: 1000 MG
     Route: 048
     Dates: start: 20200724, end: 20200727
  4. ATORVASTATIN [Concomitant]
     Active Substance: ATORVASTATIN
  5. PROMETHAZINE [Concomitant]
     Active Substance: PROMETHAZINE HYDROCHLORIDE

REACTIONS (8)
  - Swelling [Unknown]
  - Joint swelling [Unknown]
  - Night sweats [Unknown]
  - Rash erythematous [Unknown]
  - Pain [Recovered/Resolved]
  - Hypersensitivity [Not Recovered/Not Resolved]
  - Pruritus [Unknown]
  - Papule [Unknown]

NARRATIVE: CASE EVENT DATE: 20200724
